FAERS Safety Report 6857190-0 (Version None)
Quarter: 2010Q3

REPORT INFORMATION
  Report Type: 
  Country: None (occurrence: None)
  Receive Date: 20100719
  Receipt Date: 20091229
  Transmission Date: 20110219
  Serious: No
  Sender: FDA-Public Use
  Company Number: US-KINGPHARMUSA00001-K200901633

PATIENT
  Sex: Male

DRUGS (3)
  1. LEVOXYL [Suspect]
     Dosage: 12.5 MCG, UNK
     Dates: start: 20090801, end: 20090101
  2. LEVOXYL [Suspect]
     Dosage: 25 MCG, UNK
     Dates: start: 20090101, end: 20090101
  3. LEVOXYL [Suspect]
     Dosage: 50 MCG, UNK
     Dates: start: 20090101

REACTIONS (1)
  - THYROXINE DECREASED [None]
